FAERS Safety Report 4621025-7 (Version None)
Quarter: 2005Q1

REPORT INFORMATION
  Report Type: 
  Country: None (occurrence: None)
  Receive Date: 20050328
  Receipt Date: 20050316
  Transmission Date: 20050727
  Serious: Yes (Hospitalization)
  Sender: FDA-Public Use
  Company Number: PHBS2005IE00574

PATIENT
  Sex: Male

DRUGS (3)
  1. VISUDYNE [Suspect]
  2. COUMADIN [Concomitant]
  3. CALCICHEW [Concomitant]

REACTIONS (4)
  - BLOOD SODIUM DECREASED [None]
  - CHEST PAIN [None]
  - INFECTION [None]
  - PNEUMONIA [None]
